FAERS Safety Report 15295063 (Version 8)
Quarter: 2022Q3

REPORT INFORMATION
  Report Type: Spontaneous
  Country: US (occurrence: US)
  Receive Date: 20180820
  Receipt Date: 20220711
  Transmission Date: 20221027
  Serious: No
  Sender: FDA-Public Use
  Company Number: US-PFIZER INC-2018331033

PATIENT
  Age: 63 Year
  Sex: Female
  Weight: 73.923 kg

DRUGS (2)
  1. XELJANZ [Suspect]
     Active Substance: TOFACITINIB CITRATE
     Indication: Arthritis
     Dosage: 5 MG, 2X/DAY
     Route: 048
  2. XELJANZ [Suspect]
     Active Substance: TOFACITINIB CITRATE
     Dosage: 10 MG, DAILY [2 TABLETS DAILY]
     Route: 048

REACTIONS (12)
  - Drug hypersensitivity [Unknown]
  - Rhinorrhoea [Not Recovered/Not Resolved]
  - Sinus disorder [Unknown]
  - Bronchitis [Recovering/Resolving]
  - Influenza [Recovering/Resolving]
  - Dyspnoea [Recovering/Resolving]
  - Cough [Recovering/Resolving]
  - Nasopharyngitis [Unknown]
  - Localised infection [Recovered/Resolved]
  - Illness [Unknown]
  - Weight increased [Unknown]
  - Urinary tract infection [Unknown]

NARRATIVE: CASE EVENT DATE: 20181222
